FAERS Safety Report 4795902-0 (Version None)
Quarter: 2005Q4

REPORT INFORMATION
  Report Type: 
  Country: None (occurrence: None)
  Receive Date: 20051012
  Receipt Date: 20050829
  Transmission Date: 20060501
  Serious: Yes (Disabling, Other)
  Sender: FDA-Public Use
  Company Number: US-MERCK-0508USA04496

PATIENT
  Age: 38 Year
  Sex: Female

DRUGS (8)
  1. FOSAMAX [Suspect]
     Indication: OSTEOPOROSIS
     Route: 048
     Dates: start: 20040101, end: 20050801
  2. FOSAMAX [Suspect]
     Indication: OSTEOPENIA
     Route: 048
     Dates: start: 20040101, end: 20050801
  3. PREMARIN [Concomitant]
     Route: 065
  4. NEXIUM [Concomitant]
     Route: 065
  5. PERCOCET [Concomitant]
     Route: 065
  6. SINGULAIR [Concomitant]
     Route: 048
  7. ADVAIR DISKUS 100/50 [Concomitant]
     Route: 065
  8. PROMETRIUM [Concomitant]
     Route: 065

REACTIONS (2)
  - ARTHROPATHY [None]
  - OSTEONECROSIS [None]
